FAERS Safety Report 8767472 (Version 2)
Quarter: 2012Q4

REPORT INFORMATION
  Report Type: Report from Study
  Country: JP (occurrence: JP)
  Receive Date: 20120904
  Receipt Date: 20120921
  Transmission Date: 20130627
  Serious: No
  Sender: FDA-Public Use
  Company Number: JP-UCBSA-064666

PATIENT
  Age: 36 Year
  Sex: Female

DRUGS (6)
  1. E KEPPRA [Suspect]
     Indication: SIMPLE PARTIAL SEIZURES
     Route: 048
     Dates: start: 20111227
  2. E KEPPRA [Suspect]
     Indication: SIMPLE PARTIAL SEIZURES
     Route: 048
     Dates: start: 20110906, end: 20111226
  3. TEGRETOL [Suspect]
     Indication: SIMPLE PARTIAL SEIZURES
     Dosage: DAILY DOSE: 400 MG
     Route: 048
  4. HYDANTOL [Suspect]
     Indication: SIMPLE PARTIAL SEIZURES
     Dosage: DAILY DOSE: 250 MG
     Route: 048
  5. TOPINA [Suspect]
     Indication: SIMPLE PARTIAL SEIZURES
     Dosage: DAILY DOSE: 300 MG
     Route: 048
  6. NO CONCOMITANT MEDICATION [Concomitant]

REACTIONS (2)
  - White blood cell count decreased [Unknown]
  - Platelet count decreased [Unknown]
